FAERS Safety Report 8613720-X (Version None)
Quarter: 2012Q3

REPORT INFORMATION
  Report Type: 
  Country: None (occurrence: None)
  Receive Date: 20120823
  Receipt Date: 20120814
  Transmission Date: 20120928
  Serious: Yes (Hospitalization)
  Sender: FDA-Public Use
  Company Number: US-BIOGENIDEC-2012BI032391

PATIENT
  Age: 59 Year
  Sex: Female

DRUGS (4)
  1. AVONEX [Suspect]
     Route: 030
     Dates: start: 20040301, end: 20100101
  2. AVONEX [Suspect]
     Route: 030
     Dates: start: 20120501
  3. AVONEX [Suspect]
     Indication: MULTIPLE SCLEROSIS
     Route: 030
     Dates: start: 20000201, end: 20030901
  4. AVONEX [Suspect]
     Route: 030
     Dates: start: 20031001, end: 20040201

REACTIONS (2)
  - FALL [None]
  - HIP FRACTURE [None]
